FAERS Safety Report 17244951 (Version 2)
Quarter: 2020Q1

REPORT INFORMATION
  Report Type: Report from Study
  Country: US (occurrence: US)
  Receive Date: 20200108
  Receipt Date: 20200113
  Transmission Date: 20200409
  Serious: Yes (Death)
  Sender: FDA-Public Use
  Company Number: US-ROCHE-2516857

PATIENT
  Age: 73 Year

DRUGS (1)
  1. ATEZOLIZUMAB. [Suspect]
     Active Substance: ATEZOLIZUMAB
     Indication: LUNG NEOPLASM MALIGNANT
     Dosage: MOST RECENT DOSE OF ATEZOLIZUMAB PRIOR TO EVENT ONSET.
     Route: 042
     Dates: start: 20191212

REACTIONS (5)
  - Abdominal abscess [Fatal]
  - Pneumonia [Fatal]
  - Large intestine perforation [Fatal]
  - Dyspnoea [Fatal]
  - Pain [Fatal]

NARRATIVE: CASE EVENT DATE: 20191221
